FAERS Safety Report 9003398 (Version 1)
Quarter: 2013Q1

REPORT INFORMATION
  Report Type: Spontaneous
  Country: US (occurrence: US)
  Receive Date: 20130108
  Receipt Date: 20130108
  Transmission Date: 20140127
  Serious: Yes (Hospitalization)
  Sender: FDA-Public Use
  Company Number: US-GLAXOSMITHKLINE-A0886347A

PATIENT
  Age: 67 Year
  Sex: Male

DRUGS (3)
  1. AVANDIA [Suspect]
     Indication: DIABETES MELLITUS
     Dosage: 4MG PER DAY
     Route: 048
     Dates: start: 19991108, end: 20070822
  2. CELEBREX [Concomitant]
  3. PLENDIL [Concomitant]

REACTIONS (5)
  - Angina pectoris [Recovering/Resolving]
  - Carotid artery stenosis [Unknown]
  - Cardiomyopathy [Unknown]
  - Dyspnoea [Unknown]
  - Oedema peripheral [Unknown]
